FAERS Safety Report 10541425 (Version 1)
Quarter: 2014Q4

REPORT INFORMATION
  Report Type: Spontaneous
  Country: US (occurrence: US)
  Receive Date: 20141024
  Receipt Date: 20141024
  Transmission Date: 20150529
  Serious: Yes (Other)
  Sender: FDA-Public Use
  Company Number: US-ABBVIE-14P-163-1298261-00

PATIENT

DRUGS (1)
  1. DEPAKOTE [Suspect]
     Active Substance: DIVALPROEX SODIUM
     Indication: MATERNAL EXPOSURE TIMING UNSPECIFIED
     Route: 064

REACTIONS (11)
  - Developmental coordination disorder [Unknown]
  - Activities of daily living impaired [Unknown]
  - Anhedonia [Unknown]
  - Tourette^s disorder [Unknown]
  - Attention deficit/hyperactivity disorder [Unknown]
  - Mental disability [Unknown]
  - Emotional distress [Unknown]
  - Autism spectrum disorder [Unknown]
  - Injury [Unknown]
  - Pain [Unknown]
  - Foetal exposure during pregnancy [Unknown]
